FAERS Safety Report 4633706-X (Version None)
Quarter: 2005Q2

REPORT INFORMATION
  Report Type: 
  Country: None (occurrence: None)
  Receive Date: 20050331
  Receipt Date: 20050107
  Transmission Date: 20051028
  Serious: Yes (Other)
  Sender: FDA-Public Use
  Company Number: 200510106BCC

PATIENT
  Age: 54 Year
  Sex: Male
  Weight: 68.0396 kg

DRUGS (6)
  1. ALEVE (CAPLET) [Suspect]
     Dosage: 440 MG, ONCE, ORAL
     Route: 048
     Dates: start: 20050107
  2. METOPROLOL [Concomitant]
  3. PROZAC [Concomitant]
  4. VICODIN [Concomitant]
  5. MORPHINE [Concomitant]
  6. NAPROSYN [Concomitant]

REACTIONS (3)
  - CHILLS [None]
  - FLUSHING [None]
  - VOMITING [None]
